FAERS Safety Report 17196672 (Version 2)
Quarter: 2020Q1

REPORT INFORMATION
  Report Type: Spontaneous
  Country: US (occurrence: US)
  Receive Date: 20191224
  Receipt Date: 20200205
  Transmission Date: 20200409
  Serious: No
  Sender: FDA-Public Use
  Company Number: US-PFIZER INC-2019552907

PATIENT
  Age: 60 Year
  Sex: Female
  Weight: 76.64 kg

DRUGS (3)
  1. LYRICA [Suspect]
     Active Substance: PREGABALIN
     Indication: BRAIN INJURY
     Dosage: 75 MG, 2X/DAY
     Dates: start: 201906
  2. LYRICA [Suspect]
     Active Substance: PREGABALIN
     Indication: HEADACHE
  3. LYRICA [Suspect]
     Active Substance: PREGABALIN
     Indication: NECK PAIN

REACTIONS (3)
  - Product use in unapproved indication [Unknown]
  - Off label use [Unknown]
  - Drug effective for unapproved indication [Unknown]

NARRATIVE: CASE EVENT DATE: 201906
